FAERS Safety Report 23756066 (Version 1)
Quarter: 2024Q2

REPORT INFORMATION
  Report Type: Spontaneous
  Country: US (occurrence: US)
  Receive Date: 20240418
  Receipt Date: 20240418
  Transmission Date: 20240716
  Serious: No
  Sender: FDA-Public Use
  Company Number: US-ALVOGEN-2024092957

PATIENT
  Sex: Female
  Weight: 95.2 kg

DRUGS (8)
  1. MACROBID [Suspect]
     Active Substance: NITROFURANTOIN\NITROFURANTOIN MONOHYDRATE
     Indication: Urinary tract infection
     Dosage: ONCE IN NOV-2023?100 MG CAPSULE?FIRST SHIP: 13-MAR-2023
     Dates: start: 202311
  2. MACROBID [Suspect]
     Active Substance: NITROFURANTOIN\NITROFURANTOIN MONOHYDRATE
     Indication: Urinary tract infection
     Dosage: TWICE IN DEC-2023
     Dates: start: 202312
  3. MACROBID [Suspect]
     Active Substance: NITROFURANTOIN\NITROFURANTOIN MONOHYDRATE
     Indication: Urinary tract infection
     Dosage: AT AN UNKNOWN DOSE, 2X/DAY FOR 7 DAYS. ?FINISHED AROUND 28-DEC-2023
     Dates: start: 202312, end: 202312
  4. MACROBID [Suspect]
     Active Substance: NITROFURANTOIN\NITROFURANTOIN MONOHYDRATE
     Indication: Urinary tract infection
     Dosage: FOR 5 DAYS
     Dates: start: 20240109
  5. KEVEYIS [Suspect]
     Active Substance: DICHLORPHENAMIDE
     Indication: Paralysis
     Dosage: STRENGTH: 50 MG AT 2 TABLETS?FIRST SHIP DATE: 13-JAN-2022.
     Route: 048
     Dates: start: 202201
  6. KEVEYIS [Suspect]
     Active Substance: DICHLORPHENAMIDE
     Indication: Paralysis
     Route: 048
  7. KEVEYIS [Suspect]
     Active Substance: DICHLORPHENAMIDE
     Indication: Paralysis
     Route: 048
     Dates: start: 202308, end: 202308
  8. KEVEYIS [Suspect]
     Active Substance: DICHLORPHENAMIDE
     Indication: Paralysis
     Route: 048

REACTIONS (1)
  - Drug interaction [Unknown]
